FAERS Safety Report 5034223-8 (Version None)
Quarter: 2006Q2

REPORT INFORMATION
  Report Type: 
  Country: None (occurrence: None)
  Receive Date: 20060626
  Receipt Date: 20060619
  Transmission Date: 20061013
  Serious: Yes (Other)
  Sender: FDA-Public Use
  Company Number: IT-GLAXOSMITHKLINE-B0428637A

PATIENT
  Age: 52 Year
  Sex: Male

DRUGS (3)
  1. ROSIGLITAZONE [Suspect]
     Indication: DIABETES MELLITUS
     Route: 048
  2. LOSARTAN POTASSIUM [Concomitant]
  3. METFORMIN HCL [Concomitant]

REACTIONS (1)
  - DIABETIC EYE DISEASE [None]
